FAERS Safety Report 5116651-5 (Version None)
Quarter: 2006Q3

REPORT INFORMATION
  Report Type: 
  Country: None (occurrence: None)
  Receive Date: 20060928
  Receipt Date: 20041203
  Transmission Date: 20061208
  Serious: Yes (Other)
  Sender: FDA-Public Use
  Company Number: GB-GLAXOSMITHKLINE-B0359443A

PATIENT
  Age: 26 Year
  Sex: Female

DRUGS (4)
  1. SEROXAT [Suspect]
     Route: 065
  2. CITALOPRAM HYDROBROMIDE [Concomitant]
  3. FLUPENTHIXOL [Concomitant]
  4. VENLAFAXIINE HCL [Concomitant]

REACTIONS (12)
  - ANGER [None]
  - DISTURBANCE IN ATTENTION [None]
  - HALLUCINATION, AUDITORY [None]
  - ILL-DEFINED DISORDER [None]
  - INTENTIONAL OVERDOSE [None]
  - IRRITABILITY [None]
  - LOSS OF LIBIDO [None]
  - MEMORY IMPAIRMENT [None]
  - OBSESSIVE-COMPULSIVE DISORDER [None]
  - PANIC ATTACK [None]
  - POLYDIPSIA [None]
  - SUICIDAL IDEATION [None]
